FAERS Safety Report 7308365-8 (Version None)
Quarter: 2011Q1

REPORT INFORMATION
  Report Type: 
  Country: None (occurrence: None)
  Receive Date: 20110223
  Receipt Date: 20110214
  Transmission Date: 20110831
  Serious: Yes (Other)
  Sender: FDA-Public Use
  Company Number: B0701423A

PATIENT
  Age: 23 Year
  Sex: Female

DRUGS (1)
  1. SUMATRIPTAN [Suspect]
     Indication: HEADACHE
     Dosage: 25MG TWICE PER DAY
     Route: 048

REACTIONS (6)
  - ISCHAEMIC STROKE [None]
  - NAUSEA [None]
  - PYREXIA [None]
  - MUSCULAR WEAKNESS [None]
  - EMOTIONAL DISTRESS [None]
  - PARAESTHESIA [None]
